FAERS Safety Report 5822057-3 (Version None)
Quarter: 2008Q3

REPORT INFORMATION
  Report Type: 
  Country: None (occurrence: None)
  Receive Date: 20080717
  Receipt Date: 20080703
  Transmission Date: 20090109
  Serious: Yes (Life-Threatening, Hospitalization)
  Sender: FDA-Public Use
  Company Number: 2007BI011378

PATIENT
  Sex: Female

DRUGS (4)
  1. AVONEX [Suspect]
     Indication: RELAPSING-REMITTING MULTIPLE SCLEROSIS
     Dosage: 30 UG; QW; IM
     Route: 030
     Dates: start: 20000426
  2. IBUBETA (CON.) [Concomitant]
  3. MICTONORM (CON.) [Concomitant]
  4. ZOLPIDEM (CON.) [Concomitant]

REACTIONS (20)
  - ACUTE MYOCARDIAL INFARCTION [None]
  - ANAEMIA [None]
  - BLOOD CHOLESTEROL INCREASED [None]
  - BLOOD GLUCOSE INCREASED [None]
  - BLOOD TRIGLYCERIDES INCREASED [None]
  - BRADYCARDIA [None]
  - CARDIAC ARREST [None]
  - COLD SWEAT [None]
  - CORONARY ARTERY STENOSIS [None]
  - DEMENTIA [None]
  - GAMMA-GLUTAMYLTRANSFERASE INCREASED [None]
  - HYPERLIPIDAEMIA [None]
  - HYPERTENSION [None]
  - HYPERTHYROIDISM [None]
  - HYPOKALAEMIA [None]
  - LOW DENSITY LIPOPROTEIN INCREASED [None]
  - TOTAL CHOLESTEROL/HDL RATIO DECREASED [None]
  - VENTRICULAR FIBRILLATION [None]
  - VERTIGO [None]
  - WHEELCHAIR USER [None]
